FAERS Safety Report 20007539 (Version 1)
Quarter: 2021Q4

REPORT INFORMATION
  Report Type: Spontaneous
  Country: CN (occurrence: CN)
  Receive Date: 20211028
  Receipt Date: 20211028
  Transmission Date: 20220303
  Serious: Yes (Other)
  Sender: FDA-Public Use
  Company Number: CN-PFIZER INC-202101382830

PATIENT
  Age: 47 Year
  Sex: Female

DRUGS (2)
  1. ZITHROMAX [Suspect]
     Active Substance: AZITHROMYCIN DIHYDRATE
     Indication: Tonsillitis
     Dosage: 0.5 G, 1X/DAY
     Route: 041
     Dates: start: 20211010, end: 20211012
  2. TAN RE QING [Concomitant]
     Indication: Therapeutic procedure
     Dosage: 20 ML, 1X/DAY
     Route: 041
     Dates: start: 20211010, end: 20211012

REACTIONS (1)
  - Erythema multiforme [Recovering/Resolving]

NARRATIVE: CASE EVENT DATE: 20211010
